FAERS Safety Report 23041062 (Version 2)
Quarter: 2023Q4

REPORT INFORMATION
  Report Type: Spontaneous
  Country: CA (occurrence: CA)
  Receive Date: 20231007
  Receipt Date: 20231205
  Transmission Date: 20240109
  Serious: Yes (Other)
  Sender: FDA-Public Use
  Company Number: CA-CELLTRION INC.-2023CA019268

PATIENT

DRUGS (5)
  1. INFLECTRA [Suspect]
     Active Substance: INFLIXIMAB-DYYB
     Indication: Crohn^s disease
     Dosage: 5 MG/KG, INDUCTION DOSES AT WEEK 0, 2 AND 6, THEN EVERY 8 WEEKS
     Route: 042
     Dates: start: 20220915
  2. INFLECTRA [Suspect]
     Active Substance: INFLIXIMAB-DYYB
     Dosage: 5 MG/KG, INDUCTION DOSES AT WEEK 0, 2 AND 6, THEN EVERY 8 WEEKS
     Route: 042
     Dates: start: 20230802
  3. INFLECTRA [Suspect]
     Active Substance: INFLIXIMAB-DYYB
     Dosage: 280 MG, 8 WEEKS AND 1 DAY
     Route: 042
     Dates: start: 20230928
  4. INFLECTRA [Suspect]
     Active Substance: INFLIXIMAB-DYYB
     Dosage: 280 MG, 8 WEEKS AND 1 DAY
     Route: 042
     Dates: start: 20231124
  5. PURINETHOL [Concomitant]
     Active Substance: MERCAPTOPURINE
     Dosage: 1 DF
     Dates: start: 202205

REACTIONS (1)
  - Cataract [Recovered/Resolved]
